FAERS Safety Report 4725641-3 (Version None)
Quarter: 2005Q3

REPORT INFORMATION
  Report Type: 
  Country: None (occurrence: None)
  Receive Date: 20050727
  Receipt Date: 20030113
  Transmission Date: 20060218
  Serious: Yes (Life-Threatening, Hospitalization, Other)
  Sender: FDA-Public Use
  Company Number: US-MERCK-0301USA01083

PATIENT
  Age: 45 Year
  Sex: Female
  Weight: 114 kg

DRUGS (10)
  1. VIOXX [Suspect]
     Indication: NEPHROLITHIASIS
     Route: 048
     Dates: start: 20011112
  2. VIOXX [Suspect]
     Indication: RENAL PAIN
     Route: 048
     Dates: start: 20011112
  3. AVAPRO [Concomitant]
     Indication: HYPERTENSION
     Route: 065
  4. PAXIL [Concomitant]
     Indication: BIPOLAR DISORDER
     Route: 065
  5. GEODON [Concomitant]
     Route: 065
  6. LIPITOR [Concomitant]
     Indication: BLOOD CHOLESTEROL INCREASED
     Route: 065
  7. LIPITOR [Concomitant]
     Indication: BLOOD TRIGLYCERIDES INCREASED
     Route: 065
  8. PRILOSEC [Concomitant]
     Route: 065
  9. LEVOXYL [Concomitant]
     Indication: THYROID DISORDER
     Route: 065
  10. PREVACID [Concomitant]
     Route: 065

REACTIONS (24)
  - ANAEMIA [None]
  - ANXIETY [None]
  - BIPOLAR I DISORDER [None]
  - CHEST PAIN [None]
  - CYSTITIS [None]
  - DEEP VEIN THROMBOSIS [None]
  - DIARRHOEA [None]
  - FATIGUE [None]
  - FLANK PAIN [None]
  - GASTRITIS [None]
  - HYDRONEPHROSIS [None]
  - INCISIONAL HERNIA [None]
  - KIDNEY INFECTION [None]
  - NEPHROLITHIASIS [None]
  - PSEUDOMONAS INFECTION [None]
  - RENAL FAILURE [None]
  - SCHIZOAFFECTIVE DISORDER [None]
  - SEPSIS [None]
  - STAPHYLOCOCCAL INFECTION [None]
  - URETERIC STENOSIS [None]
  - URINARY RETENTION [None]
  - URINARY TRACT INFECTION [None]
  - UROSEPSIS [None]
  - WEIGHT INCREASED [None]
